FAERS Safety Report 5574155-X (Version None)
Quarter: 2007Q4

REPORT INFORMATION
  Report Type: 
  Country: None (occurrence: None)
  Receive Date: 20071221
  Receipt Date: 20071213
  Transmission Date: 20080405
  Serious: Yes (Other)
  Sender: FDA-Public Use
  Company Number: S07-USA-06332-01

PATIENT
  Sex: Male

DRUGS (3)
  1. LEXAPRO [Suspect]
  2. ALCOHOL [Suspect]
  3. ADDERALL 10 [Suspect]

REACTIONS (2)
  - DRUG INTERACTION [None]
  - SEROTONIN SYNDROME [None]
